FAERS Safety Report 7741580-8 (Version None)
Quarter: 2011Q3

REPORT INFORMATION
  Report Type: 
  Country: None (occurrence: None)
  Receive Date: 20110909
  Receipt Date: 20110905
  Transmission Date: 20111222
  Serious: Yes (Other)
  Sender: FDA-Public Use
  Company Number: CN-ASTRAZENECA-2011SE53249

PATIENT
  Sex: Female

DRUGS (2)
  1. PROPOFOL [Suspect]
     Indication: ABORTION INDUCED
     Dosage: 1-5 MG/KG TO 2.0 MG/KG
     Route: 042
  2. FENTANYL-100 [Suspect]
     Indication: ABORTION INDUCED
     Route: 042

REACTIONS (1)
  - CARDIOVASCULAR INSUFFICIENCY [None]
